FAERS Safety Report 9522895 (Version 2)
Quarter: 2013Q3

REPORT INFORMATION
  Report Type: Spontaneous
  Country: TR (occurrence: TR)
  Receive Date: 20130913
  Receipt Date: 20130919
  Transmission Date: 20140515
  Serious: Yes (Death)
  Sender: FDA-Public Use
  Company Number: TR-ROCHE-1274015

PATIENT
  Age: 84 Year
  Sex: Female

DRUGS (1)
  1. LUCENTIS [Suspect]
     Indication: AGE-RELATED MACULAR DEGENERATION
     Route: 050
     Dates: start: 2010

REACTIONS (5)
  - Myocardial infarction [Fatal]
  - Atrial fibrillation [Fatal]
  - Cardiac arrest [Fatal]
  - Blood urea increased [Unknown]
  - White blood cells urine positive [Unknown]
